FAERS Safety Report 8616760-X (Version None)
Quarter: 2012Q3

REPORT INFORMATION
  Report Type: 
  Country: None (occurrence: None)
  Receive Date: 20120823
  Receipt Date: 20120820
  Transmission Date: 20120928
  Serious: Yes (Other)
  Sender: FDA-Public Use
  Company Number: US-009507513-2011SP027261

PATIENT

DRUGS (2)
  1. NUVARING [Suspect]
     Indication: CONTRACEPTION
     Dates: start: 20080601, end: 20100801
  2. NUVARING [Suspect]

REACTIONS (8)
  - MENTAL DISORDER [None]
  - CHOLECYSTECTOMY [None]
  - VOMITING [None]
  - ABDOMINAL PAIN [None]
  - CHOLECYSTITIS CHRONIC [None]
  - DIARRHOEA [None]
  - LIMB INJURY [None]
  - NAUSEA [None]
